FAERS Safety Report 24169774 (Version 1)
Quarter: 2024Q3

REPORT INFORMATION
  Report Type: Spontaneous
  Country: TR (occurrence: TR)
  Receive Date: 20240803
  Receipt Date: 20240803
  Transmission Date: 20241017
  Serious: Yes (Hospitalization, Other)
  Sender: NOVITIUM PHARMA
  Company Number: TR-NOVITIUMPHARMA-2024TRNVP01458

PATIENT
  Age: 18 Year
  Sex: Female
  Weight: 50 kg

DRUGS (10)
  1. LIDOCAINE HYDROCHLORIDE [Suspect]
     Active Substance: LIDOCAINE HYDROCHLORIDE
     Indication: Vasoconstriction
  2. LIDOCAINE HYDROCHLORIDE [Suspect]
     Active Substance: LIDOCAINE HYDROCHLORIDE
     Indication: Infiltration anaesthesia
  3. EPINEPHRINE [Concomitant]
     Active Substance: EPINEPHRINE
     Indication: Vasoconstriction
  4. EPINEPHRINE [Concomitant]
     Active Substance: EPINEPHRINE
  5. FENTANYL [Concomitant]
     Active Substance: FENTANYL\FENTANYL CITRATE
     Indication: Induction of anaesthesia
  6. PROPOFOL [Concomitant]
     Active Substance: PROPOFOL
     Indication: Induction of anaesthesia
  7. PROPOFOL [Concomitant]
     Active Substance: PROPOFOL
     Indication: Maintenance of anaesthesia
  8. ROCURONIUM [Concomitant]
     Active Substance: ROCURONIUM BROMIDE
     Indication: Product used for unknown indication
  9. SEVOFLURANE [Concomitant]
     Active Substance: SEVOFLURANE
     Indication: Maintenance of anaesthesia
     Dosage: END-TIDAL
  10. CEFAZOLIN [Concomitant]
     Active Substance: CEFAZOLIN
     Indication: Antibiotic prophylaxis

REACTIONS (4)
  - Ventricular tachycardia [Recovered/Resolved]
  - Stress cardiomyopathy [Recovering/Resolving]
  - Circulatory collapse [Recovering/Resolving]
  - Sinus tachycardia [Recovered/Resolved]
